FAERS Safety Report 4700701-1 (Version None)
Quarter: 2005Q2

REPORT INFORMATION
  Report Type: 
  Country: None (occurrence: None)
  Receive Date: 20050627
  Receipt Date: 20050609
  Transmission Date: 20051028
  Serious: Yes (Hospitalization)
  Sender: FDA-Public Use
  Company Number: DEU-2005-0001492

PATIENT
  Age: 83 Year
  Sex: Female

DRUGS (11)
  1. PALLADONE [Suspect]
     Indication: PAIN
     Dosage: 4 MG, BID, ORAL
     Route: 048
  2. MARCUMAR [Suspect]
     Indication: THROMBOSIS PROPHYLAXIS
     Dosage: SEE TEXT, ORAL
     Route: 048
  3. HALLOPERIDOL (HALOPERIDOL) [Concomitant]
  4. BETA BLOCKING AGENTS [Concomitant]
  5. DIGITOXIN TAB [Concomitant]
  6. PENTAERYTHIRITOL TETRANITRATE TAB [Concomitant]
  7. BISOPROLOL FUMARATE [Concomitant]
  8. TOREM (TORASEMIDE) [Concomitant]
  9. POTASSIUM (POTASSIUM) [Concomitant]
  10. PANTOZOL (PATOPRAZOLE SODIUM) [Concomitant]
  11. SIMVASTATIN [Concomitant]

REACTIONS (6)
  - ANTICOAGULATION DRUG LEVEL BELOW THERAPEUTIC [None]
  - CONDITION AGGRAVATED [None]
  - DRUG INEFFECTIVE [None]
  - ISCHAEMIC CEREBRAL INFARCTION [None]
  - LEFT VENTRICULAR FAILURE [None]
  - PROTHROMBIN TIME SHORTENED [None]
